FAERS Safety Report 7126336-1 (Version None)
Quarter: 2010Q4

REPORT INFORMATION
  Report Type: 
  Country: None (occurrence: None)
  Receive Date: 20101129
  Receipt Date: 20101122
  Transmission Date: 20110411
  Serious: Yes (Other)
  Sender: FDA-Public Use
  Company Number: US-US-EMD SERONO, INC.-7002449

PATIENT
  Sex: Female
  Weight: 78 kg

DRUGS (8)
  1. REBIF [Suspect]
     Indication: MULTIPLE SCLEROSIS
     Route: 058
     Dates: start: 20070301
  2. KEPPRA [Concomitant]
     Indication: CONVULSION
  3. LAMICTAL [Concomitant]
     Indication: EPILEPSY
  4. LAMICTAL [Concomitant]
     Indication: CONVULSION
  5. KEPPRA XR [Concomitant]
     Indication: EPILEPSY
  6. KEPPRA XR [Concomitant]
     Indication: CONVULSION
  7. NAPROXEN [Concomitant]
     Indication: PAIN
  8. KLONOPIN [Concomitant]
     Indication: ANXIETY

REACTIONS (3)
  - ARTHRITIS [None]
  - INJECTION SITE HAEMATOMA [None]
  - VISUAL ACUITY REDUCED [None]
